FAERS Safety Report 8224373-7 (Version None)
Quarter: 2012Q1

REPORT INFORMATION
  Report Type: 
  Country: None (occurrence: None)
  Receive Date: 20120321
  Receipt Date: 20120315
  Transmission Date: 20120608
  Serious: No
  Sender: FDA-Public Use
  Company Number: JP-PFIZER INC-2012017422

PATIENT
  Age: 50 Year
  Sex: Male
  Weight: 55 kg

DRUGS (8)
  1. LYRICA [Suspect]
     Dosage: 75 MG, 2X/DAY
     Route: 048
     Dates: start: 20111106, end: 20111119
  2. LORCAM [Concomitant]
     Indication: PAIN IN EXTREMITY
     Dosage: 4 MG, UNK
     Route: 048
     Dates: start: 20111025
  3. MYONAL [Concomitant]
     Indication: NECK PAIN
     Dosage: 50 MG, UNK
     Route: 048
     Dates: start: 20111025
  4. LYRICA [Suspect]
     Indication: NEUROPATHY PERIPHERAL
     Dosage: 75 MG, 1X/DAY (AT NIGHT)
     Route: 048
     Dates: start: 20111101, end: 20111106
  5. LYRICA [Suspect]
     Dosage: 75 MG, 2X/DAY
     Route: 048
     Dates: start: 20111202, end: 20120110
  6. LYRICA [Suspect]
     Dosage: 225 MG, UNK
     Route: 048
     Dates: start: 20120110
  7. LYRICA [Suspect]
     Dosage: 225 MG, UNK
     Route: 048
     Dates: start: 20111120, end: 20111202
  8. TRAMADOL HYDROCHLORIDE AND ACETAMINOPHEN [Suspect]
     Dosage: UNK

REACTIONS (1)
  - TREMOR [None]
